FAERS Safety Report 18015524 (Version 4)
Quarter: 2021Q2

REPORT INFORMATION
  Report Type: Spontaneous
  Country: US (occurrence: US)
  Receive Date: 20200713
  Receipt Date: 20210624
  Transmission Date: 20210717
  Serious: Yes (Other)
  Sender: FDA-Public Use
  Company Number: US-GILEAD-2020-0480354

PATIENT
  Age: 62 Year
  Sex: Female
  Weight: 87.98 kg

DRUGS (36)
  1. PREZISTA [Concomitant]
     Active Substance: DARUNAVIR ETHANOLATE
  2. GENTAMYCIN [GENTAMICIN] [Concomitant]
     Active Substance: GENTAMICIN
  3. ISORBIDE [ISOSORBIDE DINITRATE] [Concomitant]
  4. ACETAMINOPHEN. [Concomitant]
     Active Substance: ACETAMINOPHEN
  5. AMOXICILLIN. [Concomitant]
     Active Substance: AMOXICILLIN
  6. DOXAZOSIN MESYLATE. [Concomitant]
     Active Substance: DOXAZOSIN MESYLATE
  7. DOCUSATE SODIUM. [Concomitant]
     Active Substance: DOCUSATE SODIUM
  8. HYDROCODONE BITARTRATE AND ACETAMINOPHEN [Concomitant]
     Active Substance: ACETAMINOPHEN\HYDROCODONE BITARTRATE
  9. CIPROFLOXACIN. [Concomitant]
     Active Substance: CIPROFLOXACIN
  10. LASIX [Concomitant]
     Active Substance: FUROSEMIDE
  11. AMPICILLIN [Concomitant]
     Active Substance: AMPICILLIN
  12. BACTRIM [Concomitant]
     Active Substance: SULFAMETHOXAZOLE\TRIMETHOPRIM
  13. LEVOTHYROXINE. [Concomitant]
     Active Substance: LEVOTHYROXINE
  14. KALETRA [Concomitant]
     Active Substance: LOPINAVIR\RITONAVIR
  15. EPIVIR [Concomitant]
     Active Substance: LAMIVUDINE
  16. AMLODIPINE BENAZEPRIL [Concomitant]
     Active Substance: AMLODIPINE BESYLATE\BENAZEPRIL HYDROCHLORIDE
  17. NIFEDIPINE. [Concomitant]
     Active Substance: NIFEDIPINE
  18. SIMVASTATIN. [Concomitant]
     Active Substance: SIMVASTATIN
  19. AMLODIPINE BESILATE [Concomitant]
     Active Substance: AMLODIPINE BESYLATE
  20. METOPROLOL. [Concomitant]
     Active Substance: METOPROLOL
  21. CARVEDILOL. [Concomitant]
     Active Substance: CARVEDILOL
  22. NORVIR [Concomitant]
     Active Substance: RITONAVIR
  23. TIVICAY [Concomitant]
     Active Substance: DOLUTEGRAVIR SODIUM
  24. ONDANSETRON [Concomitant]
     Active Substance: ONDANSETRON
  25. ABACAVIR. [Concomitant]
     Active Substance: ABACAVIR
  26. AZITHROMYCIN ANHYDROUS. [Concomitant]
     Active Substance: AZITHROMYCIN ANHYDROUS
  27. SODIUM BICARBONATE. [Concomitant]
     Active Substance: SODIUM BICARBONATE
  28. FERROUS SULFATE. [Concomitant]
     Active Substance: FERROUS SULFATE
  29. CYTRA?2 [Concomitant]
     Active Substance: CITRIC ACID MONOHYDRATE\TRISODIUM CITRATE DIHYDRATE
  30. CLONIDINE. [Concomitant]
     Active Substance: CLONIDINE
  31. PRAVASTATIN. [Concomitant]
     Active Substance: PRAVASTATIN
  32. LOSARTAN POTASSIUM. [Concomitant]
     Active Substance: LOSARTAN POTASSIUM
  33. IBUPROFEN. [Concomitant]
     Active Substance: IBUPROFEN
  34. TRUVADA [Suspect]
     Active Substance: EMTRICITABINE\TENOFOVIR DISOPROXIL FUMARATE
     Indication: HIV INFECTION
     Dosage: UNK
     Route: 048
     Dates: start: 2001, end: 2016
  35. CLINDAMYCIN. [Concomitant]
     Active Substance: CLINDAMYCIN
  36. ZEMPLAR [Concomitant]
     Active Substance: PARICALCITOL

REACTIONS (10)
  - Renal failure [Unknown]
  - Pain [Unknown]
  - Bone loss [Unknown]
  - Bone density decreased [Unknown]
  - End stage renal disease [Not Recovered/Not Resolved]
  - Osteoporosis [Not Recovered/Not Resolved]
  - Hypothyroidism [Unknown]
  - Multiple fractures [Unknown]
  - Emotional distress [Unknown]
  - Osteonecrosis [Unknown]

NARRATIVE: CASE EVENT DATE: 201910
